FAERS Safety Report 9412023 (Version 1)
Quarter: 2013Q2

REPORT INFORMATION
  Report Type: Spontaneous
  Country: JP (occurrence: None)
  Receive Date: 20130412
  Receipt Date: 20130412
  Transmission Date: 20140414
  Serious: Yes (Hospitalization, Other)
  Sender: FDA-Public Use
  Company Number: ENT 2013-0049

PATIENT
  Age: 56 Year
  Sex: Male

DRUGS (7)
  1. ENTACAPONE [Suspect]
     Indication: PARKINSON^S DISEASE
     Route: 048
  2. AMANTADINE [Suspect]
     Indication: PARKINSON^S DISEASE
     Route: 048
  3. MENESIT [Suspect]
     Indication: PARKINSON^S DISEASE
     Route: 048
  4. PERMAX [Suspect]
     Indication: PARKINSON^S DISEASE
     Dosage: DOSE REDUCED
     Route: 048
  5. CABASER [Suspect]
     Dosage: REDUCED DOSE
     Route: 048
  6. REQUIP [Suspect]
     Route: 048
  7. FP [Suspect]
     Dosage: REDUCED DOSE
     Route: 048

REACTIONS (9)
  - Drug withdrawal syndrome [None]
  - Impulse-control disorder [None]
  - Nightmare [None]
  - Psychomotor hyperactivity [None]
  - Erythema [None]
  - Skin exfoliation [None]
  - Dyskinesia [None]
  - Aggression [None]
  - Restlessness [None]
